FAERS Safety Report 11961803 (Version 4)
Quarter: 2016Q4

REPORT INFORMATION
  Report Type: Spontaneous
  Country: JP (occurrence: JP)
  Receive Date: 20160126
  Receipt Date: 20161005
  Transmission Date: 20170206
  Serious: Yes (Death, Hospitalization, Other)
  Sender: FDA-Public Use
  Company Number: JP-TAKEDA-2016TJP001146

PATIENT
  Age: 76 Year
  Sex: Male
  Weight: 55 kg

DRUGS (4)
  1. SIGMART [Concomitant]
     Active Substance: NICORANDIL
     Dosage: 5 MG, TID
     Route: 065
  2. NESINA [Suspect]
     Active Substance: ALOGLIPTIN BENZOATE
     Indication: DIABETES MELLITUS
     Dosage: 25 MG, QD
     Route: 048
     Dates: start: 20120705, end: 20160118
  3. RABEPRAZOLE SODIUM. [Concomitant]
     Active Substance: RABEPRAZOLE SODIUM
     Dosage: 10 MG, QD
     Route: 048
     Dates: end: 20160118
  4. WARFARIN                           /00014803/ [Concomitant]
     Active Substance: WARFARIN
     Dosage: 1 MG, QD
     Route: 048

REACTIONS (1)
  - Interstitial lung disease [Fatal]

NARRATIVE: CASE EVENT DATE: 20160118
